FAERS Safety Report 9048969 (Version 1)
Quarter: 2013Q1

REPORT INFORMATION
  Report Type: Spontaneous
  Country: GB (occurrence: None)
  Receive Date: 20130117
  Receipt Date: 20130117
  Transmission Date: 20140127
  Serious: Yes (Hospitalization, Disabling)
  Sender: FDA-Public Use
  Company Number: GB-010567

PATIENT
  Age: 12 Year
  Sex: Female
  Weight: 51.8 kg

DRUGS (1)
  1. ZOMACTON (ZOMACTON) 10 MG (NOT SPECIFIED) [Suspect]
     Indication: GROWTH HORMONE DEFICIENCY
     Route: 058
     Dates: start: 20111011

REACTIONS (1)
  - Epiphysiolysis [None]
